FAERS Safety Report 25539746 (Version 2)
Quarter: 2025Q3

REPORT INFORMATION
  Report Type: Spontaneous
  Country: EU (occurrence: EU)
  Receive Date: 20250710
  Receipt Date: 20250808
  Transmission Date: 20251020
  Serious: No
  Sender: PFIZER
  Company Number: EU-PFIZER INC-202500133573

PATIENT
  Sex: Male

DRUGS (1)
  1. HYMPAVZI [Suspect]
     Active Substance: MARSTACIMAB-HNCQ
     Indication: Factor IX deficiency
     Dosage: 150 MG, WEEKLY
     Route: 058

REACTIONS (2)
  - Product dose omission issue [Unknown]
  - Device defective [Unknown]
